FAERS Safety Report 7220182-6 (Version None)
Quarter: 2011Q1

REPORT INFORMATION
  Report Type: 
  Country: None (occurrence: None)
  Receive Date: 20110111
  Receipt Date: 20100615
  Transmission Date: 20110831
  Serious: Yes (Hospitalization, Other)
  Sender: FDA-Public Use
  Company Number: US-BAYER-200943415NA

PATIENT
  Sex: Female
  Weight: 113.64 kg

DRUGS (10)
  1. YASMIN [Suspect]
     Indication: CONTRACEPTION
     Dates: start: 20030901
  2. TEMAZEPAM [Concomitant]
  3. ZITHROMAX [Concomitant]
     Indication: PNEUMONIA
     Dates: start: 20040226
  4. WELLBUTRIN [Concomitant]
  5. IBUPROFEN [Concomitant]
     Dates: end: 20040201
  6. ROCEPHIN [Concomitant]
     Indication: PNEUMONIA
     Route: 042
     Dates: start: 20040226
  7. PERCOCET [Concomitant]
     Route: 048
  8. LISINOPRIL [Concomitant]
     Route: 048
  9. MS CONTIN [Concomitant]
     Route: 048
  10. EFFEXOR [Concomitant]

REACTIONS (18)
  - HAEMOPTYSIS [None]
  - RESPIRATORY TRACT HAEMORRHAGE [None]
  - DEEP VEIN THROMBOSIS [None]
  - LUNG INFILTRATION [None]
  - PAIN IN EXTREMITY [None]
  - OEDEMA PERIPHERAL [None]
  - COUGH [None]
  - PULMONARY HAEMORRHAGE [None]
  - PULMONARY INFARCTION [None]
  - HYPOXIA [None]
  - ATELECTASIS [None]
  - ANAEMIA POSTOPERATIVE [None]
  - CHEST PAIN [None]
  - HAEMOTHORAX [None]
  - MALAISE [None]
  - DYSPNOEA [None]
  - MUSCULOSKELETAL PAIN [None]
  - PULMONARY EMBOLISM [None]
